FAERS Safety Report 5268328-3 (Version None)
Quarter: 2007Q1

REPORT INFORMATION
  Report Type: 
  Country: None (occurrence: None)
  Receive Date: 20070315
  Receipt Date: 20070315
  Transmission Date: 20070707
  Serious: Yes (Other)
  Sender: FDA-Public Use
  Company Number: None

PATIENT
  Age: 80 Year
  Sex: Female
  Weight: 77.5651 kg

DRUGS (10)
  1. REMICADE [Suspect]
     Indication: RHEUMATOID ARTHRITIS
     Dosage: 240MG Q 8 WKS IV
     Route: 042
     Dates: start: 20060908
  2. REMICADE [Suspect]
     Indication: RHEUMATOID ARTHRITIS
     Dosage: 240MG Q 8 WKS IV
     Route: 042
     Dates: start: 20060925
  3. REMICADE [Suspect]
     Indication: RHEUMATOID ARTHRITIS
     Dosage: 240MG Q 8 WKS IV
     Route: 042
     Dates: start: 20061020
  4. REMICADE [Suspect]
     Indication: RHEUMATOID ARTHRITIS
     Dosage: 240MG Q 8 WKS IV
     Route: 042
     Dates: start: 20061214
  5. REMICADE [Suspect]
     Indication: RHEUMATOID ARTHRITIS
     Dosage: 240MG Q 8 WKS IV
     Route: 042
     Dates: start: 20070208
  6. ZETIA [Concomitant]
  7. PREVACID [Concomitant]
  8. VITAMINS [Concomitant]
  9. ASPIRIN [Concomitant]
  10. PLAVIX [Concomitant]

REACTIONS (2)
  - PRURITUS [None]
  - URTICARIA [None]
